FAERS Safety Report 18997744 (Version 1)
Quarter: 2021Q1

REPORT INFORMATION
  Report Type: Spontaneous
  Country: RO (occurrence: RO)
  Receive Date: 20210311
  Receipt Date: 20210311
  Transmission Date: 20210420
  Serious: Yes (Other)
  Sender: FDA-Public Use
  Company Number: RO-ASTRAZENECA-2021A111026

PATIENT
  Age: 35 Year
  Sex: Male
  Weight: 117 kg

DRUGS (9)
  1. NITROMINT [Concomitant]
     Active Substance: NITROGLYCERIN
     Indication: CHEST PAIN
     Route: 060
  2. ENTRESTO [Suspect]
     Active Substance: SACUBITRIL\VALSARTAN
     Indication: CARDIAC FAILURE CONGESTIVE
     Dosage: UNK UNK, BID
     Route: 048
     Dates: start: 202101, end: 202101
  3. NITROMINT [Concomitant]
     Active Substance: NITROGLYCERIN
     Indication: RESPIRATORY RATE INCREASED
     Route: 060
  4. ENTRESTO [Suspect]
     Active Substance: SACUBITRIL\VALSARTAN
     Indication: CARDIAC FAILURE CONGESTIVE
     Dosage: (49MG/51MG) BID
     Route: 048
     Dates: start: 20200921, end: 20201130
  5. NITROMINT [Concomitant]
     Active Substance: NITROGLYCERIN
     Indication: BLOOD PRESSURE INCREASED
     Route: 060
  6. CRESTOR [Concomitant]
     Active Substance: ROSUVASTATIN CALCIUM
     Indication: DYSLIPIDAEMIA
     Route: 048
     Dates: start: 2017
  7. FORXIGA [Suspect]
     Active Substance: DAPAGLIFLOZIN
     Indication: PRODUCT USED FOR UNKNOWN INDICATION
     Route: 048
  8. ENTRESTO [Suspect]
     Active Substance: SACUBITRIL\VALSARTAN
     Indication: CARDIAC FAILURE
     Dosage: (49MG/51MG) BID
     Route: 048
     Dates: start: 20200921, end: 20201130
  9. ENTRESTO [Suspect]
     Active Substance: SACUBITRIL\VALSARTAN
     Indication: CARDIAC FAILURE
     Dosage: UNK UNK, BID
     Route: 048
     Dates: start: 202101, end: 202101

REACTIONS (4)
  - Drug intolerance [Unknown]
  - Chills [Unknown]
  - Rash [Recovered/Resolved]
  - Coronary artery disease [Unknown]

NARRATIVE: CASE EVENT DATE: 20200921
